FAERS Safety Report 15043407 (Version 1)
Quarter: 2018Q2

REPORT INFORMATION
  Report Type: Spontaneous
  Country: US (occurrence: US)
  Receive Date: 20180621
  Receipt Date: 20180621
  Transmission Date: 20180711
  Serious: No
  Sender: FDA-Public Use
  Company Number: US-SA-2018SA161331

PATIENT
  Sex: Female

DRUGS (1)
  1. DUPIXENT [Suspect]
     Active Substance: DUPILUMAB
     Dosage: UNK DF
     Route: 058

REACTIONS (4)
  - Myalgia [Unknown]
  - Asthenia [Unknown]
  - Bone pain [Unknown]
  - Musculoskeletal stiffness [Unknown]
